FAERS Safety Report 7232317-X (Version None)
Quarter: 2011Q1

REPORT INFORMATION
  Report Type: 
  Country: None (occurrence: None)
  Receive Date: 20110106
  Receipt Date: 20101228
  Transmission Date: 20110831
  Serious: Yes (Hospitalization)
  Sender: FDA-Public Use
  Company Number: OMPQ-NO-10128-1087

PATIENT
  Age: 71 Year
  Sex: Male

DRUGS (4)
  1. GLUCOSE, SODIUM CHLORIDE (SOLACET) [Concomitant]
  2. SEISHOKU [Concomitant]
  3. SOLU-CORTEF [Concomitant]
  4. OMNIPAQUE 70 [Suspect]
     Indication: METASTASES TO LYMPH NODES
     Dosage: 100 ML, SINGLE DOSE, I.V.
     Route: 042
     Dates: start: 20101224, end: 20101224

REACTIONS (2)
  - BLOOD PRESSURE DECREASED [None]
  - LOSS OF CONSCIOUSNESS [None]
